FAERS Safety Report 17665236 (Version 2)
Quarter: 2020Q2

REPORT INFORMATION
  Report Type: Spontaneous
  Country: GB (occurrence: GB)
  Receive Date: 20200414
  Receipt Date: 20200625
  Transmission Date: 20200713
  Serious: Yes (Other)
  Sender: FDA-Public Use
  Company Number: PHHY2017GB200907

PATIENT
  Age: 19 Year
  Sex: Female

DRUGS (7)
  1. CLARITHROMYCIN. [Suspect]
     Active Substance: CLARITHROMYCIN
     Indication: SEPSIS
  2. TEICOPLANIN [Suspect]
     Active Substance: TEICOPLANIN
     Indication: SEPSIS
  3. CLARITHROMYCIN. [Suspect]
     Active Substance: CLARITHROMYCIN
     Indication: BETA HAEMOLYTIC STREPTOCOCCAL INFECTION
     Dosage: UNK, 32 WEEKS
     Route: 065
  4. CLINDAMYCIN. [Suspect]
     Active Substance: CLINDAMYCIN
     Indication: BETA HAEMOLYTIC STREPTOCOCCAL INFECTION
     Dosage: UNK
     Route: 065
  5. PIPERACILLIN AND TAZOBACTAM [Suspect]
     Active Substance: PIPERACILLIN SODIUM\TAZOBACTAM SODIUM
     Indication: SEPSIS
     Dosage: UNK
     Route: 065
  6. CLINDAMYCIN. [Suspect]
     Active Substance: CLINDAMYCIN
     Indication: SEPSIS
  7. TEICOPLANIN [Suspect]
     Active Substance: TEICOPLANIN
     Indication: BETA HAEMOLYTIC STREPTOCOCCAL INFECTION
     Dosage: UNK
     Route: 065

REACTIONS (8)
  - Maternal exposure during pregnancy [Unknown]
  - Normal newborn [Unknown]
  - Pyrexia [Unknown]
  - Pancytopenia [Unknown]
  - Premature delivery [Unknown]
  - Drug ineffective [Unknown]
  - Transaminases increased [Unknown]
  - Acidosis [Unknown]
